FAERS Safety Report 6706647-1 (Version None)
Quarter: 2010Q2

REPORT INFORMATION
  Report Type: 
  Country: None (occurrence: None)
  Receive Date: 20100503
  Receipt Date: 20100426
  Transmission Date: 20101027
  Serious: Yes (Other)
  Sender: FDA-Public Use
  Company Number: US-TEVA-232514USA

PATIENT
  Age: 58 Year
  Sex: Male

DRUGS (8)
  1. BLEOMYCIN SULFATE 15 UNITS/10 ML AND 30 UNITS/20ML [Suspect]
     Indication: LYMPHOMA
  2. DACARBAZINE [Suspect]
  3. DOXORUBICIN HCL [Suspect]
  4. VINCRISTINE [Suspect]
     Indication: LYMPHOMA
  5. CHLORMETHINE HYDROCHLORIDE [Suspect]
     Indication: LYMPHOMA
  6. PROCARBAZINE [Suspect]
     Indication: LYMPHOMA
  7. PREDNISONE TAB [Suspect]
     Indication: LYMPHOMA
  8. VINBLASTINE SULFATE [Suspect]
     Indication: LYMPHOMA

REACTIONS (2)
  - ANOSMIA [None]
  - HYPOSMIA [None]
